FAERS Safety Report 4311673-6 (Version None)
Quarter: 2004Q1

REPORT INFORMATION
  Report Type: 
  Country: None (occurrence: None)
  Receive Date: 20040303
  Receipt Date: 20040303
  Transmission Date: 20041129
  Serious: Yes (Other)
  Sender: FDA-Public Use
  Company Number: None

PATIENT
  Age: 40 Year
  Sex: Female
  Weight: 50.3493 kg

DRUGS (1)
  1. METHADOSE 10 MG MELLINCROFT [Suspect]
     Indication: PAIN
     Dosage: 10 MG QID ORAL
     Route: 048
     Dates: start: 20030306, end: 20030405

REACTIONS (7)
  - CHILLS [None]
  - DRUG WITHDRAWAL SYNDROME [None]
  - LETHARGY [None]
  - MIGRAINE [None]
  - MUSCLE CRAMP [None]
  - PAIN [None]
  - PHARMACEUTICAL PRODUCT COMPLAINT [None]
